FAERS Safety Report 17241888 (Version 1)
Quarter: 2019Q4

REPORT INFORMATION
  Report Type: Spontaneous
  Country: US (occurrence: US)
  Receive Date: 20191212
  Receipt Date: 20191212
  Transmission Date: 20200122
  Serious: Yes (Hospitalization)
  Sender: FDA-Public Use
  Company Number: None

PATIENT
  Age: 21 Year
  Sex: Female
  Weight: 45.1 kg

DRUGS (1)
  1. PALBOCICLIB (PD-0332991) [Suspect]
     Active Substance: PALBOCICLIB

REACTIONS (2)
  - Confusional state [None]
  - Aphasia [None]

NARRATIVE: CASE EVENT DATE: 20191201
